FAERS Safety Report 16101995 (Version 1)
Quarter: 2019Q1

REPORT INFORMATION
  Report Type: Spontaneous
  Country: GB (occurrence: GB)
  Receive Date: 20190321
  Receipt Date: 20190321
  Transmission Date: 20190418
  Serious: Yes (Other)
  Sender: FDA-Public Use
  Company Number: PHHY2019GB058392

PATIENT
  Age: 21 Year
  Sex: Female

DRUGS (5)
  1. PARACETAMOL [Suspect]
     Active Substance: ACETAMINOPHEN
     Indication: ARTHRALGIA
     Dosage: 3 G, QD
     Route: 065
  2. ERYTHROMYCIN. [Concomitant]
     Active Substance: ERYTHROMYCIN
     Indication: LOWER RESPIRATORY TRACT INFECTION
     Route: 065
  3. COCODAMOL [Suspect]
     Active Substance: ACETAMINOPHEN\CODEINE PHOSPHATE
     Indication: ARTHRALGIA
     Route: 065
  4. AMOXICILLIN. [Concomitant]
     Active Substance: AMOXICILLIN
     Indication: URINARY TRACT INFECTION
     Route: 065
  5. CODEINE [Concomitant]
     Active Substance: CODEINE
     Indication: PRODUCT USED FOR UNKNOWN INDICATION
     Route: 065

REACTIONS (24)
  - Headache [Recovered/Resolved]
  - Wheezing [Unknown]
  - Macrocytosis [Unknown]
  - Pyroglutamate increased [Recovered/Resolved]
  - Blood alkaline phosphatase increased [Unknown]
  - Haemophilus test positive [Unknown]
  - Exposure during pregnancy [Unknown]
  - White blood cell count increased [Unknown]
  - Vomiting [Recovered/Resolved]
  - Musculoskeletal chest pain [Recovered/Resolved]
  - Neutrophilia [Unknown]
  - Gamma-glutamyltransferase increased [Unknown]
  - Lower respiratory tract infection [Unknown]
  - Metabolic acidosis [Recovered/Resolved]
  - Decreased appetite [Recovered/Resolved]
  - Musculoskeletal chest pain [Unknown]
  - Mean cell volume increased [Unknown]
  - Dyspnoea [Recovered/Resolved]
  - Decreased appetite [Unknown]
  - Anisocytosis [Unknown]
  - Urinary tract infection [Unknown]
  - Ketonuria [Unknown]
  - Respiratory rate increased [Unknown]
  - Back pain [Recovered/Resolved]
